FAERS Safety Report 19608174 (Version 1)
Quarter: 2021Q3

REPORT INFORMATION
  Report Type: Spontaneous
  Country: GB (occurrence: GB)
  Receive Date: 20210726
  Receipt Date: 20210726
  Transmission Date: 20211014
  Serious: Yes (Life-Threatening)
  Sender: FDA-Public Use
  Company Number: GB-DRREDDYS-SPO/UKI/21/0138006

PATIENT
  Age: 44 Year
  Sex: Female
  Weight: 100 kg

DRUGS (13)
  1. PREGABALIN. [Suspect]
     Active Substance: PREGABALIN
     Indication: ILL-DEFINED DISORDER
     Dates: start: 20210705
  2. AMITRIPTYLINE HYDROCHLORIDE. [Concomitant]
     Active Substance: AMITRIPTYLINE HYDROCHLORIDE
     Indication: ILL-DEFINED DISORDER
     Dosage: 1/2 AT NIGHT INITIALLY INCREASING TO 1 OD
     Dates: start: 20210712
  3. SALBUTAMOL [Concomitant]
     Active Substance: ALBUTEROL
     Indication: ILL-DEFINED DISORDER
     Dosage: INHALE
     Dates: start: 20171220
  4. TIBOLONE [Concomitant]
     Active Substance: TIBOLONE
     Indication: ILL-DEFINED DISORDER
     Dosage: AS PER GYNAE
     Dates: start: 20200701
  5. COCODAMOL [Concomitant]
     Active Substance: ACETAMINOPHEN\CODEINE PHOSPHATE
     Indication: ILL-DEFINED DISORDER
     Dosage: ONE OR TWO TO BE TAKEN FOUR TIMES A DAY.
     Dates: start: 20210621
  6. DIAZEPAM. [Concomitant]
     Active Substance: DIAZEPAM
     Indication: ILL-DEFINED DISORDER
     Dates: start: 20210602, end: 20210609
  7. LUPRON DEPOT [Concomitant]
     Active Substance: LEUPROLIDE ACETATE
     Indication: ILL-DEFINED DISORDER
     Dates: start: 20200211
  8. SERETIDE [Concomitant]
     Active Substance: FLUTICASONE PROPIONATE\SALMETEROL XINAFOATE
     Indication: ILL-DEFINED DISORDER
     Dosage: INHALE
     Dates: start: 20200204
  9. CITALOPRAM [Concomitant]
     Active Substance: CITALOPRAM HYDROBROMIDE
     Indication: ILL-DEFINED DISORDER
     Dates: start: 20210426
  10. LAXIDO [Concomitant]
     Active Substance: POLYETHYLENE GLYCOL 3350\POTASSIUM CHLORIDE\SODIUM BICARBONATE\SODIUM CHLORIDE
     Indication: ILL-DEFINED DISORDER
     Dates: start: 20210608, end: 20210706
  11. EPIPEN [Concomitant]
     Active Substance: EPINEPHRINE
     Indication: ILL-DEFINED DISORDER
     Dates: start: 20190221
  12. PREGABALIN. [Suspect]
     Active Substance: PREGABALIN
     Indication: ILL-DEFINED DISORDER
     Dates: start: 20210714
  13. LANSOPRAZOLE. [Concomitant]
     Active Substance: LANSOPRAZOLE
     Indication: ILL-DEFINED DISORDER
     Dates: start: 20200113

REACTIONS (3)
  - Eye disorder [Unknown]
  - Lip swelling [Recovered/Resolved]
  - Syncope [Unknown]

NARRATIVE: CASE EVENT DATE: 20210714
